FAERS Safety Report 9740346 (Version 1)
Quarter: 2013Q4

REPORT INFORMATION
  Report Type: Spontaneous
  Country: US (occurrence: US)
  Receive Date: 20131209
  Receipt Date: 20131209
  Transmission Date: 20140711
  Serious: Yes (Hospitalization, Other)
  Sender: FDA-Public Use
  Company Number: US-GILEAD-2013-0089502

PATIENT
  Sex: Female

DRUGS (3)
  1. LETAIRIS [Suspect]
     Indication: PRODUCT USED FOR UNKNOWN INDICATION
     Dosage: 10 MG, QD
     Route: 048
     Dates: start: 20090924
  2. SILDENAFIL CITRATE [Concomitant]
  3. WARFARIN SODIUM [Concomitant]

REACTIONS (2)
  - Atrial fibrillation [Unknown]
  - Catheterisation cardiac [Unknown]
